FAERS Safety Report 7266160-2 (Version None)
Quarter: 2011Q1

REPORT INFORMATION
  Report Type: 
  Country: None (occurrence: None)
  Receive Date: 20110131
  Receipt Date: 20101011
  Transmission Date: 20110831
  Serious: No
  Sender: FDA-Public Use
  Company Number: US-ABBOTT-10P-163-0678225-00

PATIENT
  Age: 75 Year
  Sex: Male

DRUGS (2)
  1. LUPRON DEPOT [Suspect]
     Indication: PROSTATE CANCER
  2. LUPRON DEPOT [Suspect]
     Indication: BLOOD TESTOSTERONE ABNORMAL

REACTIONS (4)
  - CHILLS [None]
  - DEPRESSION [None]
  - HOT FLUSH [None]
  - CRYING [None]
